FAERS Safety Report 8439194-X (Version None)
Quarter: 2012Q2

REPORT INFORMATION
  Report Type: 
  Country: None (occurrence: None)
  Receive Date: 20120615
  Receipt Date: 20120611
  Transmission Date: 20120825
  Serious: Yes (Other)
  Sender: FDA-Public Use
  Company Number: PHEH2012US011774

PATIENT
  Sex: Male

DRUGS (5)
  1. PLAVIX [Concomitant]
  2. METOPROLOL SUCCINATE [Concomitant]
     Indication: CARDIAC DISORDER
  3. DIOVAN HCT [Suspect]
     Indication: BLOOD PRESSURE
     Dosage: 1 DF (320 MG VALSAR AND 25 MG HYDRO), ONCE DAILY
  4. TILDIAZIDE [Concomitant]
     Indication: CARDIAC DISORDER
  5. LIPITOR [Concomitant]
     Indication: BLOOD CHOLESTEROL

REACTIONS (3)
  - MYOCARDIAL INFARCTION [None]
  - TYPE 2 DIABETES MELLITUS [None]
  - BLOOD PRESSURE INCREASED [None]
